FAERS Safety Report 15473600 (Version 1)
Quarter: 2018Q4

REPORT INFORMATION
  Report Type: Spontaneous
  Country: US (occurrence: US)
  Receive Date: 20181008
  Receipt Date: 20181008
  Transmission Date: 20190205
  Serious: No
  Sender: FDA-Public Use
  Company Number: US-GLAXOSMITHKLINE-US2018177044

PATIENT
  Age: 19 Year
  Sex: Male

DRUGS (2)
  1. MONTELUKAST [Concomitant]
     Active Substance: MONTELUKAST SODIUM
  2. NUCALA [Suspect]
     Active Substance: MEPOLIZUMAB
     Indication: PRODUCT USED FOR UNKNOWN INDICATION
     Dosage: 100 MG, UNK
     Dates: start: 2016

REACTIONS (4)
  - Hypersensitivity [Unknown]
  - Ill-defined disorder [Unknown]
  - Vomiting [Unknown]
  - Drug effect decreased [Unknown]

NARRATIVE: CASE EVENT DATE: 201805
